FAERS Safety Report 25826698 (Version 1)
Quarter: 2025Q3

REPORT INFORMATION
  Report Type: Spontaneous
  Country: RU (occurrence: RU)
  Receive Date: 20250920
  Receipt Date: 20250920
  Transmission Date: 20251020
  Serious: Yes (Hospitalization)
  Sender: ABBVIE
  Company Number: RU-ABBOTT-2025A-1402573

PATIENT
  Sex: Female

DRUGS (2)
  1. CREON [Suspect]
     Active Substance: PANCRELIPASE AMYLASE\PANCRELIPASE LIPASE\PANCRELIPASE PROTEASE
     Indication: Pancreatitis chronic
     Route: 048
  2. MEBEVERINE [Suspect]
     Active Substance: MEBEVERINE
     Indication: Irritable bowel syndrome
     Dosage: THE PATIENT HAD BEEN TAKING DUSPATALIN FOR SEVERAL MONTHS
     Route: 065

REACTIONS (6)
  - Abdominal distension [Unknown]
  - Ovarian haemorrhage [Unknown]
  - Peritonitis [Unknown]
  - Flatulence [Unknown]
  - Pneumatosis intestinalis [Unknown]
  - Abdominal pain [Recovering/Resolving]
